FAERS Safety Report 6714541-5 (Version None)
Quarter: 2010Q2

REPORT INFORMATION
  Report Type: 
  Country: None (occurrence: None)
  Receive Date: 20100506
  Receipt Date: 20100427
  Transmission Date: 20101027
  Serious: Yes (Hospitalization)
  Sender: FDA-Public Use
  Company Number: TR-WATSON-2010-05791

PATIENT
  Age: 23 Year
  Sex: Female

DRUGS (2)
  1. FUROSEMIDE (WATSON LABORATORIES) [Suspect]
     Indication: SUICIDE ATTEMPT
     Dosage: 360 MG, SINGLE
     Route: 048
     Dates: start: 20080201
  2. FEXOFENADINE [Suspect]
     Indication: SUICIDE ATTEMPT
     Dosage: 2400 MG, SINGLE
     Route: 048
     Dates: start: 20080201

REACTIONS (3)
  - ELECTROCARDIOGRAM QT PROLONGED [None]
  - HYPOCALCAEMIA [None]
  - HYPOKALAEMIA [None]
